FAERS Safety Report 4543735-2 (Version None)
Quarter: 2005Q1

REPORT INFORMATION
  Report Type: 
  Country: None (occurrence: None)
  Receive Date: 20050103
  Receipt Date: 20041222
  Transmission Date: 20050727
  Serious: Yes (Death, Life-Threatening, Hospitalization, Other)
  Sender: FDA-Public Use
  Company Number: JP-BRISTOL-MYERS SQUIBB COMPANY-12805750

PATIENT
  Age: 68 Year
  Sex: Male
  Weight: 50 kg

DRUGS (3)
  1. UFT [Suspect]
     Indication: GASTRIC CANCER STAGE IV
     Dosage: PREVIOUSLY ADMIN: 12-APR-2003 - 19-APR-2004 (1.5 G/DAY); GRANULES
     Route: 042
     Dates: start: 20040803, end: 20040830
  2. TAXOL [Suspect]
     Indication: GASTRIC CANCER STAGE IV
     Dosage: 70 MG/DAY 06-13MAY04;  50 MG/D 03-10JUN04; 100 MG/D 11AUG04; 50 MG/DAY 25AUG04; 60 MG/D 15SEP04
     Route: 042
     Dates: start: 20040825, end: 20040825
  3. TS-1 [Suspect]
     Indication: GASTRIC CANCER STAGE IV
     Dosage: 125 MG/DAY 06-19MAY04 100 MG/D 03-16JUN04 25 MG/D 15-20SEP04
     Route: 048
     Dates: start: 20040603, end: 20040616

REACTIONS (18)
  - ANOREXIA [None]
  - ANTITHROMBIN III INCREASED [None]
  - BLOOD FIBRINOGEN INCREASED [None]
  - BLOOD GLUCOSE INCREASED [None]
  - BONE MARROW DEPRESSION [None]
  - CARDIAC ARREST [None]
  - CARDIAC FAILURE ACUTE [None]
  - CATHETER RELATED COMPLICATION [None]
  - DEPRESSED LEVEL OF CONSCIOUSNESS [None]
  - DEPRESSION [None]
  - DIARRHOEA [None]
  - DISSEMINATED INTRAVASCULAR COAGULATION [None]
  - FIBRIN DEGRADATION PRODUCTS INCREASED [None]
  - GLUCOSE TOLERANCE IMPAIRED [None]
  - HYPOKALAEMIA [None]
  - PROTHROMBIN TIME PROLONGED [None]
  - PYREXIA [None]
  - WHITE BLOOD CELL COUNT INCREASED [None]
